FAERS Safety Report 14022190 (Version 1)
Quarter: 2017Q3

REPORT INFORMATION
  Report Type: Spontaneous
  Country: US (occurrence: US)
  Receive Date: 20170928
  Receipt Date: 20170928
  Transmission Date: 20171128
  Serious: Yes (Other)
  Sender: FDA-Public Use
  Company Number: US-IMPAX LABORATORIES, INC-2017-IPXL-02782

PATIENT
  Age: 81 Year
  Sex: Female
  Weight: 72 kg

DRUGS (17)
  1. VITAMIN D3 [Concomitant]
     Active Substance: CHOLECALCIFEROL
     Indication: VITAMIN SUPPLEMENTATION
     Dosage: 2000 IU, UNK
     Route: 065
  2. CALTRATE [Concomitant]
     Active Substance: CALCIUM CARBONATE
     Indication: VITAMIN SUPPLEMENTATION
     Dosage: UNK
     Route: 065
  3. VITAMINS [Concomitant]
     Active Substance: VITAMINS
     Indication: VITAMIN SUPPLEMENTATION
     Dosage: UNK
     Route: 065
  4. HYDROCHLOROTHIAZIDE. [Concomitant]
     Active Substance: HYDROCHLOROTHIAZIDE
     Indication: POLYURIA
     Dosage: 25 MG, UNK
     Route: 065
  5. CARBIDOPA/LEVODOPA [Concomitant]
     Active Substance: CARBIDOPA\LEVODOPA
     Indication: PARKINSON^S DISEASE
     Dosage: 50/200 MG, UNK
     Route: 065
  6. ICAPS [Concomitant]
     Active Substance: MINERALS\VITAMINS
     Indication: VITAMIN SUPPLEMENTATION
     Dosage: UNK
     Route: 065
  7. SERTRALINE [Concomitant]
     Active Substance: SERTRALINE HYDROCHLORIDE
     Indication: DEPRESSION
     Dosage: 50 MG, UNK
     Route: 065
  8. RYTARY [Suspect]
     Active Substance: CARBIDOPA\LEVODOPA
     Indication: PARKINSON^S DISEASE
     Dosage: 48.75 MG/195 MG, 1 DF, 4 /DAY
     Route: 065
     Dates: start: 20170823
  9. ENTACAPONE. [Concomitant]
     Active Substance: ENTACAPONE
     Indication: PARKINSON^S DISEASE
     Dosage: 200 MG, UNK
     Route: 065
  10. RYTARY [Suspect]
     Active Substance: CARBIDOPA\LEVODOPA
     Dosage: 61.25 MG/245 MG, 1 DF, 4 /DAY
     Route: 065
  11. TRAVATAN [Concomitant]
     Active Substance: TRAVOPROST
     Indication: GLAUCOMA
     Dosage: 10 MG, UNK
     Route: 065
  12. ASPIRIN 81 [Concomitant]
     Active Substance: ASPIRIN
     Indication: BLOOD CHOLESTEROL ABNORMAL
     Dosage: 81 MG, UNK
     Route: 065
  13. ROPINIROLE. [Concomitant]
     Active Substance: ROPINIROLE
     Indication: RESTLESS LEGS SYNDROME
     Dosage: 2 MG, UNK
     Route: 065
  14. LEVOTHYROXINE. [Concomitant]
     Active Substance: LEVOTHYROXINE
     Indication: THYROID DISORDER
     Dosage: 25 MG, UNK
     Route: 065
  15. TEARS [Concomitant]
     Indication: DRY EYE
     Dosage: UNK
     Route: 065
  16. RYTARY [Suspect]
     Active Substance: CARBIDOPA\LEVODOPA
     Dosage: 48.75 MG/195 MG, 1 DF, 4 /DAY
     Route: 065
  17. MELATONIN [Concomitant]
     Active Substance: MELATONIN
     Indication: SLEEP DISORDER
     Dosage: 1 MG, UNK

REACTIONS (4)
  - Intentional product use issue [Unknown]
  - Joint dislocation [Not Recovered/Not Resolved]
  - Gait disturbance [Not Recovered/Not Resolved]
  - Constipation [Recovering/Resolving]

NARRATIVE: CASE EVENT DATE: 2017
